FAERS Safety Report 24219478 (Version 2)
Quarter: 2024Q3

REPORT INFORMATION
  Report Type: Spontaneous
  Country: US (occurrence: US)
  Receive Date: 20240816
  Receipt Date: 20240910
  Transmission Date: 20241017
  Serious: Yes (Hospitalization)
  Sender: DAIICHI
  Company Number: US-DAIICHI SANKYO, INC.-DSU-2024-140717AA

PATIENT
  Sex: Female

DRUGS (1)
  1. VANFLYTA [Suspect]
     Active Substance: QUIZARTINIB DIHYDROCHLORIDE
     Indication: Acute myeloid leukaemia
     Dosage: 35.4 MG (2 TABLETS), QD ON DAYS 6 TO 19 OF EACH 28-DAY CONSOLIDATION CYCLE
     Route: 048
     Dates: start: 20240720

REACTIONS (1)
  - Transplant [Not Recovered/Not Resolved]
